FAERS Safety Report 6468257-3 (Version None)
Quarter: 2009Q4

REPORT INFORMATION
  Report Type: 
  Country: None (occurrence: None)
  Receive Date: 20091124
  Receipt Date: 20091109
  Transmission Date: 20100525
  Serious: No
  Sender: FDA-Public Use
  Company Number: B0605525A

PATIENT
  Age: 63 Year

DRUGS (2)
  1. LAMOTRIGINE [Suspect]
     Dosage: 50 MG / TWICE PER DAY /
  2. ATORVASTATIN CALCIUM [Concomitant]

REACTIONS (2)
  - DRUG WITHDRAWAL SYNDROME [None]
  - IRRITABILITY [None]
